FAERS Safety Report 21238311 (Version 1)
Quarter: 2022Q3

REPORT INFORMATION
  Report Type: Spontaneous
  Country: DE (occurrence: DE)
  Receive Date: 20220822
  Receipt Date: 20220822
  Transmission Date: 20221027
  Serious: Yes (Life-Threatening, Hospitalization, Other)
  Sender: FDA-Public Use
  Company Number: DE-BRISTOL-MYERS SQUIBB COMPANY-2022-090161

PATIENT
  Age: 57 Year
  Sex: Female

DRUGS (2)
  1. NIVOLUMAB [Suspect]
     Active Substance: NIVOLUMAB
     Indication: Malignant melanoma
     Dosage: DOSE : IPI 3MG/KG BW/ NIVO 1MG/KG BW;
     Route: 065
     Dates: end: 20220204
  2. IPILIMUMAB [Suspect]
     Active Substance: IPILIMUMAB
     Indication: Malignant melanoma
     Dosage: 3 MG/KG BW
     Route: 065
     Dates: end: 20220204

REACTIONS (3)
  - Liver function test abnormal [Unknown]
  - Immune-mediated hepatitis [Unknown]
  - Hypothyroidism [Unknown]
